FAERS Safety Report 7875311-8 (Version None)
Quarter: 2011Q4

REPORT INFORMATION
  Report Type: 
  Country: None (occurrence: None)
  Receive Date: 20111031
  Receipt Date: 20111018
  Transmission Date: 20120403
  Serious: Yes (Hospitalization, Other)
  Sender: FDA-Public Use
  Company Number: PHHY2011JP87773

PATIENT
  Sex: Male

DRUGS (15)
  1. ZYPREXA [Suspect]
     Dosage: 20 MG, DAILY
     Route: 048
     Dates: start: 20110122
  2. ZYPREXA [Suspect]
     Dosage: 12.5 MG, DAILY
     Route: 048
     Dates: start: 20110913
  3. TEGRETOL [Suspect]
     Dosage: 400 MG, DAILY
     Route: 048
     Dates: start: 20110927, end: 20110928
  4. TEGRETOL [Suspect]
     Indication: BIPOLAR I DISORDER
     Dosage: 400 MG, DAILY
     Route: 048
     Dates: start: 20110809, end: 20110816
  5. TEGRETOL [Suspect]
     Dosage: 200 MG, DAILY
     Route: 048
     Dates: start: 20110929, end: 20110930
  6. DEPAKENE [Suspect]
     Dosage: 1200 MG, DAILY
     Route: 048
     Dates: start: 20110913, end: 20110925
  7. LITHIUM CARBONATE [Suspect]
     Dosage: 400 MG DAILY
     Route: 048
     Dates: start: 20110927
  8. TEGRETOL [Suspect]
     Dosage: 600 MG, DAILY
     Route: 048
     Dates: start: 20110817, end: 20110926
  9. DEPAKENE [Suspect]
     Indication: BIPOLAR I DISORDER
     Dosage: 800 MG, DAILY
     Route: 048
     Dates: start: 20100420, end: 20110912
  10. ZYPREXA [Suspect]
     Dosage: 5 MG, DAILY
     Route: 048
     Dates: start: 20110916, end: 20110921
  11. LITHIUM CARBONATE [Suspect]
     Indication: BIPOLAR I DISORDER
     Dosage: 600 MG, DAILY
     Route: 048
     Dates: start: 20100809, end: 20110926
  12. NITRAZEPAM [Concomitant]
     Dosage: 10 MG, DAILY
  13. ZYPREXA [Suspect]
     Dosage: 15 MG, DAILY
     Route: 048
     Dates: start: 20110811
  14. DEPAKENE [Suspect]
     Dosage: 600 MG, DAILY
     Route: 048
     Dates: start: 20110926
  15. ZYPREXA [Suspect]
     Dosage: 10 MG DAILY
     Route: 048

REACTIONS (15)
  - TREMOR [None]
  - ALTERED STATE OF CONSCIOUSNESS [None]
  - SLOW RESPONSE TO STIMULI [None]
  - PARKINSONISM [None]
  - DYSPHAGIA [None]
  - PARKINSONIAN GAIT [None]
  - SOMNOLENCE [None]
  - HYPOKINESIA [None]
  - URINARY RETENTION [None]
  - MANIA [None]
  - MUSCLE RIGIDITY [None]
  - COGWHEEL RIGIDITY [None]
  - DYSKINESIA [None]
  - EYE MOVEMENT DISORDER [None]
  - POSTURE ABNORMAL [None]
